FAERS Safety Report 23302159 (Version 1)
Quarter: 2023Q4

REPORT INFORMATION
  Report Type: Spontaneous
  Country: US (occurrence: US)
  Receive Date: 20231215
  Receipt Date: 20231215
  Transmission Date: 20240109
  Serious: No
  Sender: FDA-Public Use
  Company Number: US-BIOVITRUM-2023-US-020133

PATIENT
  Age: 0 Year
  Sex: Female

DRUGS (1)
  1. SYNAGIS [Suspect]
     Active Substance: PALIVIZUMAB
     Indication: Cardiomyopathy
     Dosage: EVERY 28DAYS - 30DAY
     Route: 030
     Dates: start: 20230311

REACTIONS (3)
  - Cough [Unknown]
  - Nasal congestion [Unknown]
  - Off label use [Not Recovered/Not Resolved]

NARRATIVE: CASE EVENT DATE: 20230311
